FAERS Safety Report 14455860 (Version 1)
Quarter: 2018Q1

REPORT INFORMATION
  Report Type: Report from Study
  Country: None (occurrence: BR)
  Receive Date: 20180130
  Receipt Date: 20180130
  Transmission Date: 20180509
  Serious: Yes (Other)
  Sender: FDA-Public Use
  Company Number: BR-ABBVIE-17K-020-2127166-00

PATIENT
  Age: 65 Year
  Sex: Female
  Weight: 68 kg

DRUGS (5)
  1. FELDENE [Concomitant]
     Active Substance: PIROXICAM
     Indication: PAIN
  2. HUMIRA [Suspect]
     Active Substance: ADALIMUMAB
     Route: 058
     Dates: start: 201801
  3. LEFLUNOMIDE. [Concomitant]
     Active Substance: LEFLUNOMIDE
     Indication: ARTHRITIS
  4. HUMIRA [Suspect]
     Active Substance: ADALIMUMAB
     Indication: RHEUMATOID ARTHRITIS
     Route: 058
     Dates: start: 20170412
  5. NAPROXEN. [Concomitant]
     Active Substance: NAPROXEN
     Indication: PAIN

REACTIONS (6)
  - Musculoskeletal disorder [Recovered/Resolved]
  - Limb deformity [Recovered/Resolved]
  - Osteoarthritis [Recovered/Resolved]
  - Musculoskeletal disorder [Recovered/Resolved]
  - Joint swelling [Not Recovered/Not Resolved]
  - Cartilage atrophy [Unknown]

NARRATIVE: CASE EVENT DATE: 2017
